FAERS Safety Report 6425877-X (Version None)
Quarter: 2009Q4

REPORT INFORMATION
  Report Type: 
  Country: None (occurrence: None)
  Receive Date: 20091030
  Receipt Date: 20091016
  Transmission Date: 20100525
  Serious: Yes (Hospitalization)
  Sender: FDA-Public Use
  Company Number: 2009AC000283

PATIENT
  Age: 64 Year
  Sex: Female

DRUGS (6)
  1. DIGOXIN [Suspect]
     Dosage: 0.125 MG; QD; PO
     Route: 048
     Dates: start: 20071114
  2. ULTRACET [Concomitant]
  3. LANTUS [Concomitant]
  4. PLAVIX [Concomitant]
  5. CHANTIX [Concomitant]
  6. DEPAKOTE [Concomitant]

REACTIONS (14)
  - ANXIETY [None]
  - ATRIAL TACHYCARDIA [None]
  - CYSTITIS [None]
  - DELUSION [None]
  - DISORIENTATION [None]
  - ECONOMIC PROBLEM [None]
  - FATIGUE [None]
  - HALLUCINATION [None]
  - HYPONATRAEMIA [None]
  - MULTIPLE DRUG OVERDOSE [None]
  - MULTIPLE INJURIES [None]
  - SURGERY [None]
  - THERAPEUTIC AGENT TOXICITY [None]
  - TROPONIN INCREASED [None]
